FAERS Safety Report 8121761-4 (Version None)
Quarter: 2012Q1

REPORT INFORMATION
  Report Type: 
  Country: None (occurrence: None)
  Receive Date: 20120207
  Receipt Date: 20120207
  Transmission Date: 20120608
  Serious: Yes (Other)
  Sender: FDA-Public Use
  Company Number: None

PATIENT
  Sex: Female
  Weight: 62.1428 kg

DRUGS (1)
  1. TESTIM [Suspect]
     Indication: ANDROGEN DEFICIENCY
     Dosage: 75 MG DAILY

REACTIONS (5)
  - PRODUCT ODOUR ABNORMAL [None]
  - UPPER RESPIRATORY TRACT IRRITATION [None]
  - NAUSEA [None]
  - ACCIDENTAL EXPOSURE [None]
  - EXPOSURE VIA PARTNER [None]
